FAERS Safety Report 24240301 (Version 1)
Quarter: 2024Q3

REPORT INFORMATION
  Report Type: Spontaneous
  Country: US (occurrence: US)
  Receive Date: 20240822
  Receipt Date: 20240822
  Transmission Date: 20241017
  Serious: No
  Sender: INSUD PHARMA
  Company Number: US-INSUD PHARMA-2408US06289

PATIENT

DRUGS (2)
  1. ENILLORING [Suspect]
     Active Substance: ETHINYL ESTRADIOL\ETONOGESTREL
     Indication: Menopausal symptoms
     Dosage: THIRD RING; USED FOR 3 WEEKS FOLLOWED BY 1 WEEK RING-FREE
     Route: 067
     Dates: start: 2024, end: 20240804
  2. ENILLORING [Suspect]
     Active Substance: ETHINYL ESTRADIOL\ETONOGESTREL
     Dosage: 2 RINGS; USED FOR 3 WEEKS FOLLOWED BY 1 WEEK RING-FREE
     Route: 067
     Dates: start: 2024, end: 2024

REACTIONS (8)
  - Drug ineffective for unapproved indication [Unknown]
  - Menopausal symptoms [Recovered/Resolved]
  - Night sweats [Recovered/Resolved]
  - Hot flush [Recovered/Resolved]
  - Product use in unapproved indication [Unknown]
  - Product with quality issue administered [Unknown]
  - Product quality issue [Unknown]
  - Product storage error [Recovered/Resolved]

NARRATIVE: CASE EVENT DATE: 20240101
